FAERS Safety Report 8077982-2 (Version None)
Quarter: 2012Q1

REPORT INFORMATION
  Report Type: 
  Country: None (occurrence: None)
  Receive Date: 20120127
  Receipt Date: 20110218
  Transmission Date: 20120608
  Serious: No
  Sender: FDA-Public Use
  Company Number: US-ABBOTT-11P-163-0695566-00

PATIENT
  Sex: Female
  Weight: 72.64 kg

DRUGS (6)
  1. HUMIRA [Suspect]
     Indication: ARTHRITIS
  2. HUMIRA [Suspect]
     Indication: ARTHRITIS
  3. HUMIRA [Suspect]
     Indication: PSORIASIS
  4. HUMIRA [Suspect]
     Indication: CROHN'S DISEASE
     Route: 058
     Dates: end: 20110101
  5. HUMIRA [Suspect]
     Indication: PSORIASIS
  6. HUMIRA [Suspect]
     Indication: CROHN'S DISEASE
     Route: 058
     Dates: start: 20110214

REACTIONS (4)
  - FEELING ABNORMAL [None]
  - HERPES ZOSTER [None]
  - RASH [None]
  - PRURITUS [None]
